FAERS Safety Report 5003042-0 (Version None)
Quarter: 2006Q2

REPORT INFORMATION
  Report Type: 
  Country: None (occurrence: None)
  Receive Date: 20060512
  Receipt Date: 20060503
  Transmission Date: 20061013
  Serious: Yes (Hospitalization, Other)
  Sender: FDA-Public Use
  Company Number: 163-20785-06030885

PATIENT
  Age: 78 Year
  Sex: Male

DRUGS (2)
  1. THALOMID [Suspect]
     Indication: MULTIPLE MYELOMA
     Dosage: 100 MG, DAILY, ORAL
     Route: 048
     Dates: start: 20060222
  2. DEXAMETHASONE [Suspect]
     Indication: MULTIPLE MYELOMA
     Dosage: DAYS 1-4

REACTIONS (21)
  - ANAEMIA [None]
  - BLAST CELLS PRESENT [None]
  - BLOOD CREATININE INCREASED [None]
  - BLOOD SMEAR TEST ABNORMAL [None]
  - CHLOROMA [None]
  - CONDITION AGGRAVATED [None]
  - DIVERTICULITIS [None]
  - DIVERTICULUM INTESTINAL [None]
  - LUNG INFECTION [None]
  - LUNG NEOPLASM [None]
  - MONOCYTE MORPHOLOGY ABNORMAL [None]
  - MULTIPLE MYELOMA [None]
  - NEUROPATHY [None]
  - OPPORTUNISTIC INFECTION [None]
  - OSTEOPENIA [None]
  - OSTEOPOROSIS [None]
  - PARAESTHESIA [None]
  - PLASMACYTOMA [None]
  - POLYCHROMASIA [None]
  - RED BLOOD CELL NUCLEATED MORPHOLOGY PRESENT [None]
  - WHITE BLOOD CELL COUNT DECREASED [None]
